FAERS Safety Report 20408304 (Version 2)
Quarter: 2022Q1

REPORT INFORMATION
  Report Type: Report from Study
  Country: US (occurrence: None)
  Receive Date: 20220201
  Receipt Date: 20220207
  Transmission Date: 20220423
  Serious: Yes (Death)
  Sender: FDA-Public Use
  Company Number: US-ROCHE-3012320

PATIENT
  Age: 83 Year
  Sex: Male

DRUGS (5)
  1. RITUXIMAB [Suspect]
     Active Substance: RITUXIMAB
     Indication: Diffuse large B-cell lymphoma
     Dosage: ON 29/DEC/2021, HE RECEIVED MOST RECENT DOSE OF RITUXIMAB.
     Route: 041
     Dates: start: 20211118
  2. CYCLOPHOSPHAMIDE [Suspect]
     Active Substance: CYCLOPHOSPHAMIDE
     Indication: Diffuse large B-cell lymphoma
     Dosage: ON 29/DEC/2021, HE RECEIVED MOST RECENT DOSE OF CYCLOPHOSPHAMIDE.
     Route: 042
     Dates: start: 20211119
  3. DOXORUBICIN [Suspect]
     Active Substance: DOXORUBICIN
     Indication: Diffuse large B-cell lymphoma
     Dosage: ON 29/DEC/2021, HE RECEIVED MOST RECENT DOSE OF DOXORUBICIN.
     Route: 042
     Dates: start: 20211119
  4. PREDNISONE [Suspect]
     Active Substance: PREDNISONE
     Indication: Diffuse large B-cell lymphoma
     Dosage: ON 02/JAN/2022, HE RECEIVED MOST RECENT DOSE OF PREDNISONE.
     Route: 048
     Dates: start: 20211115
  5. VINCRISTINE [Suspect]
     Active Substance: VINCRISTINE
     Indication: Diffuse large B-cell lymphoma
     Dosage: ON 29/DEC/2021, HE RECEIVED MOST RECENT DOSE OF VINCRISTINE.
     Route: 042
     Dates: start: 20211119

REACTIONS (1)
  - COVID-19 [Fatal]

NARRATIVE: CASE EVENT DATE: 20220125
